FAERS Safety Report 25161603 (Version 1)
Quarter: 2025Q2

REPORT INFORMATION
  Report Type: Spontaneous
  Country: GB (occurrence: GB)
  Receive Date: 20250404
  Receipt Date: 20250404
  Transmission Date: 20250717
  Serious: Yes (Hospitalization, Other)
  Sender: ELI LILLY AND COMPANY
  Company Number: GB-MYLANLABS-2024M1096769

PATIENT
  Sex: Female
  Weight: 150 kg

DRUGS (14)
  1. MOUNJARO [Suspect]
     Active Substance: TIRZEPATIDE
     Indication: Weight control
     Route: 065
  2. BENZOYL PEROXIDE\CLINDAMYCIN PHOSPHATE [Suspect]
     Active Substance: BENZOYL PEROXIDE\CLINDAMYCIN PHOSPHATE
     Indication: Borderline personality disorder
     Dosage: 275 MG, BID
     Route: 048
     Dates: start: 20241023
  3. BENZOYL PEROXIDE\CLINDAMYCIN PHOSPHATE [Suspect]
     Active Substance: BENZOYL PEROXIDE\CLINDAMYCIN PHOSPHATE
     Indication: Hallucination, auditory
  4. BENZOYL PEROXIDE\CLINDAMYCIN PHOSPHATE [Suspect]
     Active Substance: BENZOYL PEROXIDE\CLINDAMYCIN PHOSPHATE
     Indication: Hallucination, visual
  5. LITHIUM [Suspect]
     Active Substance: LITHIUM
     Indication: Product used for unknown indication
     Dosage: 1200 MG, DAILY
     Route: 048
  6. ACETAMINOPHEN [Suspect]
     Active Substance: ACETAMINOPHEN
     Indication: Product used for unknown indication
     Route: 065
  7. OMEPRAZOLE [Concomitant]
     Active Substance: OMEPRAZOLE
     Indication: Product used for unknown indication
     Dosage: 20 MG, DAILY
     Route: 048
  8. TEMAZEPAM [Concomitant]
     Active Substance: TEMAZEPAM
     Indication: Product used for unknown indication
     Dosage: 10 MG, DAILY
     Route: 048
  9. SCOPOLAMINE HYDROBROMIDE [Concomitant]
     Active Substance: SCOPOLAMINE HYDROBROMIDE
     Indication: Product used for unknown indication
     Dosage: 300 MICROGRAM, BID
     Route: 048
  10. METFORMIN [Concomitant]
     Active Substance: METFORMIN HYDROCHLORIDE
     Indication: Product used for unknown indication
     Dosage: 500 MILLIGRAM, AM
     Route: 048
  11. PROPRANOLOL [Concomitant]
     Active Substance: PROPRANOLOL HYDROCHLORIDE
     Indication: Product used for unknown indication
     Dosage: 10 MILLIGRAM, BID
     Route: 048
  12. PROMETHAZINE [Concomitant]
     Active Substance: PROMETHAZINE HYDROCHLORIDE
     Indication: Product used for unknown indication
     Route: 048
  13. LORAZEPAM [Concomitant]
     Active Substance: LORAZEPAM
     Indication: Product used for unknown indication
     Route: 048
  14. ZOPICLONE [Concomitant]
     Active Substance: ZOPICLONE
     Indication: Product used for unknown indication
     Route: 048

REACTIONS (8)
  - Mental impairment [Unknown]
  - Differential white blood cell count abnormal [Not Recovered/Not Resolved]
  - Leukocytosis [Recovering/Resolving]
  - Neutrophilia [Not Recovered/Not Resolved]
  - Eosinophilia [Recovering/Resolving]
  - Nausea [Unknown]
  - Diarrhoea [Unknown]
  - Lethargy [Unknown]

NARRATIVE: CASE EVENT DATE: 20250217
